FAERS Safety Report 4966423-7 (Version None)
Quarter: 2006Q2

REPORT INFORMATION
  Report Type: 
  Country: None (occurrence: None)
  Receive Date: 20060407
  Receipt Date: 20060329
  Transmission Date: 20061013
  Serious: Yes (Other)
  Sender: FDA-Public Use
  Company Number: ZA-ROCHE-442629

PATIENT

DRUGS (1)
  1. ROACCUTANE [Suspect]
     Route: 065

REACTIONS (1)
  - SCHIZOPHRENIA [None]
